FAERS Safety Report 13831374 (Version 2)
Quarter: 2020Q3

REPORT INFORMATION
  Report Type: Spontaneous
  Country: US (occurrence: US)
  Receive Date: 20170803
  Receipt Date: 20200721
  Transmission Date: 20201102
  Serious: No
  Sender: FDA-Public Use
  Company Number: US-BAYER-2017-141743

PATIENT
  Age: 50 Year
  Sex: Female

DRUGS (2)
  1. ESTRADIOL. [Suspect]
     Active Substance: ESTRADIOL
     Dosage: 0.0375 MG
     Route: 062
  2. CLIMARA [Suspect]
     Active Substance: ESTRADIOL
     Dosage: UNK
     Route: 062

REACTIONS (5)
  - Product adhesion issue [None]
  - Incorrect dose administered by product [None]
  - Hot flush [Unknown]
  - Tearfulness [None]
  - Product adhesion issue [None]

NARRATIVE: CASE EVENT DATE: 20200714
